FAERS Safety Report 7517432-5 (Version None)
Quarter: 2011Q2

REPORT INFORMATION
  Report Type: 
  Country: None (occurrence: None)
  Receive Date: 20110601
  Receipt Date: 20110531
  Transmission Date: 20111010
  Serious: Yes (Hospitalization, Other)
  Sender: FDA-Public Use
  Company Number: SE-PFIZER INC-2011089375

PATIENT
  Age: 49 Year
  Sex: Female

DRUGS (2)
  1. VARENICLINE TARTRATE [Suspect]
     Dosage: UNK
     Dates: start: 20110407
  2. CYPRON [Concomitant]
     Dosage: UNK

REACTIONS (3)
  - EXTRASYSTOLES [None]
  - ARRHYTHMIA [None]
  - CARDIAC FIBRILLATION [None]
